FAERS Safety Report 12377914 (Version 1)
Quarter: 2016Q2

REPORT INFORMATION
  Report Type: Spontaneous
  Country: US (occurrence: US)
  Receive Date: 20160517
  Receipt Date: 20160517
  Transmission Date: 20160815
  Serious: No
  Sender: FDA-Public Use
  Company Number: US-JNJFOC-20160420229

PATIENT
  Age: 75 Year
  Sex: Female
  Weight: 90.72 kg

DRUGS (3)
  1. TYLENOL 8 HR ARTHRITIS PAIN [Suspect]
     Active Substance: ACETAMINOPHEN
     Indication: BACK PAIN
     Dosage: 1 OR 2 CAPLETS AS NEEDED
     Route: 048
  2. TYLENOL 8 HR ARTHRITIS PAIN [Suspect]
     Active Substance: ACETAMINOPHEN
     Indication: ARTHRITIS
     Dosage: 1 OR 2 CAPLETS AS NEEDED
     Route: 048
  3. TYLENOL 8 HR ARTHRITIS PAIN [Suspect]
     Active Substance: ACETAMINOPHEN
     Indication: PAIN
     Dosage: 1 OR 2 CAPLETS AS NEEDED
     Route: 048

REACTIONS (2)
  - Incorrect dose administered [Unknown]
  - Inappropriate schedule of drug administration [Unknown]
